FAERS Safety Report 22808894 (Version 2)
Quarter: 2023Q4

REPORT INFORMATION
  Report Type: Report from Study
  Country: US (occurrence: US)
  Receive Date: 20230810
  Receipt Date: 20231013
  Transmission Date: 20240109
  Serious: Yes (Hospitalization, Other)
  Sender: FDA-Public Use
  Company Number: US-GILEAD-2023-0639556

PATIENT
  Sex: Female

DRUGS (1)
  1. SOFOSBUVIR\VELPATASVIR [Suspect]
     Active Substance: SOFOSBUVIR\VELPATASVIR
     Indication: Hepatitis C
     Dosage: 1 DOSAGE FORM, QD
     Route: 048
     Dates: start: 20230528

REACTIONS (3)
  - Dehydration [Recovering/Resolving]
  - Pancreatitis [Recovering/Resolving]
  - Product dose omission issue [Unknown]
